FAERS Safety Report 10299972 (Version 1)
Quarter: 2014Q3

REPORT INFORMATION
  Report Type: Spontaneous
  Country: US (occurrence: US)
  Receive Date: 20140711
  Receipt Date: 20140711
  Transmission Date: 20150326
  Serious: Yes (Death, Hospitalization)
  Sender: FDA-Public Use
  Company Number: US-BAXTER-2014BAX036995

PATIENT
  Age: 64 Year
  Sex: Male

DRUGS (4)
  1. CEFTRIAXONE AND DEXTROSE [Suspect]
     Active Substance: CEFTRIAXONE SODIUM
     Indication: ANTIBIOTIC THERAPY
     Dosage: PLAN TO TREAT FOR 6 WEEKS
     Route: 065
  2. VANCOMYCIN INJECTION, USP [Suspect]
     Active Substance: VANCOMYCIN
     Indication: ANTIBIOTIC THERAPY
     Route: 065
  3. PIPERACILLIN/TAZOBACTAM [Concomitant]
     Active Substance: PIPERACILLIN SODIUM\TAZOBACTAM SODIUM
     Indication: ANTIBIOTIC THERAPY
     Route: 065
  4. AZITHROMYCIN [Concomitant]
     Active Substance: AZITHROMYCIN ANHYDROUS
     Indication: PRODUCT USED FOR UNKNOWN INDICATION
     Route: 065

REACTIONS (10)
  - Mediastinal abscess [Unknown]
  - Pneumonia klebsiella [Unknown]
  - Death [Fatal]
  - Candida test positive [Unknown]
  - Fungal test positive [Unknown]
  - Graft infection [Unknown]
  - Hypotension [Unknown]
  - Enterococcus test positive [Unknown]
  - Pleural effusion [Unknown]
  - Oesophageal rupture [Unknown]
